FAERS Safety Report 9513190 (Version 1)
Quarter: 2013Q3

REPORT INFORMATION
  Report Type: Spontaneous
  Country: US (occurrence: US)
  Receive Date: 20130910
  Receipt Date: 20130910
  Transmission Date: 20140515
  Serious: No
  Sender: FDA-Public Use
  Company Number: US-PFIZER INC-2013257592

PATIENT
  Age: 55 Year
  Sex: Female
  Weight: 49.43 kg

DRUGS (1)
  1. MOTRIN IB [Suspect]
     Indication: INSOMNIA
     Dosage: 2-3 CAPLETS A DAY
     Route: 048
     Dates: start: 20080701, end: 20080701

REACTIONS (1)
  - Drug ineffective for unapproved indication [Unknown]
